FAERS Safety Report 8181653-1 (Version None)
Quarter: 2012Q1

REPORT INFORMATION
  Report Type: 
  Country: None (occurrence: None)
  Receive Date: 20120302
  Receipt Date: 20120225
  Transmission Date: 20120608
  Serious: Yes (Other)
  Sender: FDA-Public Use
  Company Number: US-US-EMD SERONO, INC.-7097321

PATIENT
  Sex: Female

DRUGS (3)
  1. REBIF [Suspect]
     Route: 058
     Dates: start: 20111104
  2. REBIF [Suspect]
     Indication: MULTIPLE SCLEROSIS
     Route: 058
     Dates: start: 20111012, end: 20111104
  3. REBIF [Suspect]
     Route: 058
     Dates: start: 20120101

REACTIONS (5)
  - MOOD SWINGS [None]
  - SUICIDE ATTEMPT [None]
  - DEPRESSION [None]
  - DIARRHOEA [None]
  - VOMITING [None]
